FAERS Safety Report 21137462 (Version 1)
Quarter: 2022Q3

REPORT INFORMATION
  Report Type: Spontaneous
  Country: US (occurrence: US)
  Receive Date: 20220727
  Receipt Date: 20220727
  Transmission Date: 20221027
  Serious: Yes (Other)
  Sender: FDA-Public Use
  Company Number: US-BAYER-2022A105265

PATIENT
  Age: 71 Year
  Sex: Male

DRUGS (1)
  1. CORICIDIN HBP MAXIMUM STRENGTH COLD, COUGH AND FLU [Suspect]
     Active Substance: ACETAMINOPHEN\DEXTROMETHORPHAN HYDROBROMIDE\GUAIFENESIN
     Dosage: 2 DF
     Route: 048
     Dates: start: 2022

REACTIONS (3)
  - Choking [Recovered/Resolved]
  - Foreign body in throat [Recovered/Resolved]
  - Dyspnoea [Recovered/Resolved]

NARRATIVE: CASE EVENT DATE: 20220715
